FAERS Safety Report 18568630 (Version 2)
Quarter: 2021Q1

REPORT INFORMATION
  Report Type: Report from Study
  Country: JP (occurrence: JP)
  Receive Date: 20201202
  Receipt Date: 20210301
  Transmission Date: 20210419
  Serious: Yes (Other)
  Sender: FDA-Public Use
  Company Number: JP-ASTRAZENECA-2020SF56725

PATIENT
  Age: 36 Year
  Sex: Male

DRUGS (1)
  1. TAGRISSO [Suspect]
     Active Substance: OSIMERTINIB
     Indication: NON-SMALL CELL LUNG CANCER
     Route: 048
     Dates: start: 20181121, end: 20200313

REACTIONS (7)
  - Neutropenia [Unknown]
  - Thrombocytopenia [Unknown]
  - Blood creatine phosphokinase increased [Unknown]
  - Diarrhoea [Unknown]
  - Stomatitis [Unknown]
  - Hepatic function abnormal [Unknown]
  - Leukopenia [Unknown]

NARRATIVE: CASE EVENT DATE: 20181228
